FAERS Safety Report 8766510 (Version 3)
Quarter: 2012Q4

REPORT INFORMATION
  Report Type: Report from Study
  Country: JP (occurrence: JP)
  Receive Date: 20120904
  Receipt Date: 20120906
  Transmission Date: 20130627
  Serious: Yes (Hospitalization)
  Sender: FDA-Public Use
  Company Number: JP-MERCK-1205USA03833

PATIENT

DRUGS (4)
  1. VANIPREVIR [Suspect]
     Indication: HEPATITIS C
     Dosage: 2 DF, bid
     Route: 048
     Dates: start: 20111006, end: 20120320
  2. PEGINTRON POWDER FOR INJECTION 100MICROG [Suspect]
     Indication: HEPATITIS C
     Dosage: 100 ?g, QW
     Route: 048
     Dates: start: 20111006, end: 20120315
  3. REBETOL CAPSULES 200MG [Suspect]
     Indication: HEPATITIS C
     Dosage: 2 DF, bid
     Route: 048
     Dates: start: 20111006, end: 20120320
  4. GASTER [Concomitant]
     Indication: PROPHYLAXIS
     Dosage: 20 mg, bid
     Route: 048
     Dates: start: 20111215, end: 20120323

REACTIONS (1)
  - Hepatocellular carcinoma [Recovered/Resolved]
